FAERS Safety Report 6736222-4 (Version None)
Quarter: 2010Q2

REPORT INFORMATION
  Report Type: 
  Country: None (occurrence: None)
  Receive Date: 20100521
  Receipt Date: 20100518
  Transmission Date: 20101027
  Serious: Yes (Hospitalization)
  Sender: FDA-Public Use
  Company Number: DE-SANOFI-AVENTIS-2010SA014861

PATIENT
  Age: 66 Year
  Sex: Female
  Weight: 86 kg

DRUGS (7)
  1. OXALIPLATIN [Suspect]
     Indication: RECTAL CANCER
     Route: 041
     Dates: start: 20091005, end: 20091005
  2. OXALIPLATIN [Suspect]
     Route: 041
     Dates: start: 20100215, end: 20100215
  3. CAPECITABINE [Suspect]
     Indication: RECTAL CANCER
     Route: 048
     Dates: start: 20091005
  4. CAPECITABINE [Suspect]
     Route: 048
     Dates: end: 20100226
  5. SULPIRIDE [Concomitant]
     Route: 048
     Dates: start: 20000101
  6. ATENOLOL [Concomitant]
     Indication: HYPERTENSION
     Route: 048
     Dates: start: 20050101
  7. AMLODIPINE [Concomitant]
     Indication: HYPERTENSION
     Route: 048
     Dates: start: 20020101

REACTIONS (6)
  - GENERALISED OEDEMA [None]
  - GLOMERULONEPHRITIS [None]
  - HYPERTENSION [None]
  - HYPOALBUMINAEMIA [None]
  - PROTEINURIA [None]
  - WEIGHT INCREASED [None]
